FAERS Safety Report 4848075-X (Version None)
Quarter: 2005Q4

REPORT INFORMATION
  Report Type: 
  Country: None (occurrence: None)
  Receive Date: 20051205
  Receipt Date: 20051205
  Transmission Date: 20060501
  Serious: Yes (Life-Threatening, Hospitalization, Disabling)
  Sender: FDA-Public Use
  Company Number: None

PATIENT
  Age: 36 Year
  Sex: Male
  Weight: 86.1834 kg

DRUGS (2)
  1. ZYPREXA [Suspect]
     Indication: BIPOLAR DISORDER
     Dosage: 10 MG   TWICE A DAY   PO
     Route: 048
     Dates: start: 20010114, end: 20030523
  2. ZYPREXA [Suspect]
     Indication: SCHIZOPHRENIA
     Dosage: 10 MG   TWICE A DAY   PO
     Route: 048
     Dates: start: 20010114, end: 20030523

REACTIONS (3)
  - SLEEP APNOEA SYNDROME [None]
  - SUFFOCATION FEELING [None]
  - WEIGHT INCREASED [None]
